FAERS Safety Report 6992730-2 (Version None)
Quarter: 2010Q3

REPORT INFORMATION
  Report Type: 
  Country: None (occurrence: None)
  Receive Date: 20100917
  Receipt Date: 20100908
  Transmission Date: 20110219
  Serious: Yes (Hospitalization)
  Sender: FDA-Public Use
  Company Number: A0773304A

PATIENT
  Age: 52 Year
  Sex: Male
  Weight: 100.9 kg

DRUGS (5)
  1. AVANDIA [Suspect]
     Route: 065
     Dates: start: 20021213, end: 20070713
  2. AVANDAMET [Suspect]
     Route: 065
     Dates: start: 20040902, end: 20051229
  3. METFORMIN [Concomitant]
     Dates: start: 20040101, end: 20080101
  4. ENALAPRIL [Concomitant]
  5. ATENOLOL [Concomitant]

REACTIONS (1)
  - CEREBROVASCULAR ACCIDENT [None]
